FAERS Safety Report 23619868 (Version 1)
Quarter: 2024Q1

REPORT INFORMATION
  Report Type: Spontaneous
  Country: GB (occurrence: GB)
  Receive Date: 20240312
  Receipt Date: 20240312
  Transmission Date: 20240409
  Serious: Yes (Other)
  Sender: FDA-Public Use
  Company Number: None

PATIENT
  Age: 58 Year
  Sex: Female
  Weight: 55 kg

DRUGS (6)
  1. PROTOPIC [Suspect]
     Active Substance: TACROLIMUS
     Indication: Urticaria chronic
     Route: 003
     Dates: start: 20240119, end: 20240220
  2. PROTOPIC [Suspect]
     Active Substance: TACROLIMUS
     Indication: Urticaria chronic
     Route: 003
     Dates: start: 20240119, end: 20240220
  3. IBULEVE [Concomitant]
     Indication: Pain
  4. LANSOPRAZOLE [Concomitant]
     Active Substance: LANSOPRAZOLE
     Indication: Abdominal pain
  5. FEXOFENADINE HYDROCHLORIDE [Concomitant]
     Active Substance: FEXOFENADINE HYDROCHLORIDE
     Indication: Urticaria chronic
     Dates: start: 20240123, end: 20240225
  6. ACETAMINOPHEN [Concomitant]
     Active Substance: ACETAMINOPHEN
     Indication: Pain

REACTIONS (4)
  - Urticaria [Unknown]
  - Erythema [Unknown]
  - Tremor [Unknown]
  - Feeling hot [Recovering/Resolving]

NARRATIVE: CASE EVENT DATE: 20240222
